FAERS Safety Report 15776678 (Version 1)
Quarter: 2018Q4

REPORT INFORMATION
  Report Type: Spontaneous
  Country: US (occurrence: US)
  Receive Date: 20181229
  Receipt Date: 20181229
  Transmission Date: 20190205
  Serious: Yes (Other)
  Sender: FDA-Public Use
  Company Number: None

PATIENT
  Age: 64 Year
  Sex: Female
  Weight: 119.25 kg

DRUGS (1)
  1. TRINTELLIX [Suspect]
     Active Substance: VORTIOXETINE HYDROBROMIDE
     Route: 048
     Dates: start: 20181129, end: 20181228

REACTIONS (5)
  - Agitation [None]
  - Self-injurious ideation [None]
  - Impulsive behaviour [None]
  - Asthenia [None]
  - Back pain [None]

NARRATIVE: CASE EVENT DATE: 20181227
